FAERS Safety Report 8416677 (Version 7)
Quarter: 2014Q3

REPORT INFORMATION
  Report Type: Spontaneous
  Country: US (occurrence: US)
  Receive Date: 20120220
  Receipt Date: 20140916
  Transmission Date: 20150326
  Serious: Yes (Hospitalization, Other)
  Sender: FDA-Public Use
  Company Number: US-BAYER-2012-014210

PATIENT
  Age: 44 Year
  Sex: Female
  Weight: 61.22 kg

DRUGS (12)
  1. MIRENA [Suspect]
     Active Substance: LEVONORGESTREL
     Indication: MENORRHAGIA
     Dosage: 20 MCG/24HR, CONT
     Route: 015
     Dates: start: 20060107, end: 20120330
  2. DOXYCYCLINE. [Concomitant]
     Active Substance: DOXYCYCLINE
  3. BUPROPION HYDROCHLORIDE. [Concomitant]
     Active Substance: BUPROPION HYDROCHLORIDE
  4. FLAGYL [Concomitant]
     Active Substance: METRONIDAZOLE\METRONIDAZOLE HYDROCHLORIDE
  5. MIRENA [Suspect]
     Active Substance: LEVONORGESTREL
     Indication: CONTRACEPTION
  6. CLONAZEPAM. [Concomitant]
     Active Substance: CLONAZEPAM
  7. FAMOTIDINE. [Concomitant]
     Active Substance: FAMOTIDINE
  8. MIRTAZAPINE. [Concomitant]
     Active Substance: MIRTAZAPINE
  9. TOPIRAMATE. [Concomitant]
     Active Substance: TOPIRAMATE
  10. DIFLUCAN [Concomitant]
     Active Substance: FLUCONAZOLE
  11. LEVOTHYROXINE [Concomitant]
     Active Substance: LEVOTHYROXINE
  12. VITAMIN D [Concomitant]
     Active Substance: CHOLECALCIFEROL

REACTIONS (22)
  - Pelvic inflammatory disease [Unknown]
  - Genital haemorrhage [None]
  - Uterine leiomyoma [None]
  - Injury [None]
  - Pelvic pain [None]
  - Abdominal pain [None]
  - Uterine scar [None]
  - Fear [None]
  - Uterine perforation [None]
  - Migraine [None]
  - Anxiety [None]
  - Device expulsion [None]
  - Mental disorder [None]
  - Device dislocation [None]
  - Headache [None]
  - Pelvic inflammatory disease [None]
  - Amenorrhoea [None]
  - Infertility female [None]
  - Dizziness [None]
  - Emotional distress [None]
  - Device misuse [None]
  - Vision blurred [None]

NARRATIVE: CASE EVENT DATE: 2006
